FAERS Safety Report 12998534 (Version 1)
Quarter: 2016Q4

REPORT INFORMATION
  Report Type: Spontaneous
  Country: US (occurrence: US)
  Receive Date: 20161203
  Receipt Date: 20161203
  Transmission Date: 20170207
  Serious: No
  Sender: FDA-Public Use
  Company Number: None

PATIENT
  Age: 59 Year
  Sex: Female
  Weight: 148.5 kg

DRUGS (8)
  1. LYRICA [Suspect]
     Active Substance: PREGABALIN
     Indication: SEIZURE
     Dates: start: 20160211, end: 20160801
  2. MICROLACTIN [Concomitant]
  3. COQ 10 [Concomitant]
     Active Substance: UBIDECARENONE
  4. LYRICA [Suspect]
     Active Substance: PREGABALIN
     Indication: SCIATICA
     Dates: start: 20160211, end: 20160801
  5. VITAMIN D [Concomitant]
     Active Substance: CHOLECALCIFEROL
  6. HYDROCHLOROTHIAZIDE. [Concomitant]
     Active Substance: HYDROCHLOROTHIAZIDE
  7. AMLODAPINE [Concomitant]
  8. LOSARTIN [Concomitant]
     Active Substance: LOSARTAN

REACTIONS (2)
  - Toothache [None]
  - Sensitivity of teeth [None]
